FAERS Safety Report 5853052-6 (Version None)
Quarter: 2008Q3

REPORT INFORMATION
  Report Type: 
  Country: None (occurrence: None)
  Receive Date: 20080821
  Receipt Date: 20080813
  Transmission Date: 20090109
  Serious: Yes (Other)
  Sender: FDA-Public Use
  Company Number: US-ASTRAZENECA-2008UW06947

PATIENT
  Age: 396 Month
  Weight: 98.4 kg

DRUGS (4)
  1. SEROQUEL [Suspect]
     Indication: AFFECTIVE DISORDER
     Dosage: 100 MG/ 300 MG
     Route: 048
     Dates: start: 20041101, end: 20060501
  2. ABILIFY [Concomitant]
     Dates: start: 20070501
  3. GEODON [Concomitant]
     Dates: start: 20070201
  4. EFFEXOR [Concomitant]
     Dates: start: 20060101, end: 20080101

REACTIONS (2)
  - DIABETES MELLITUS [None]
  - NECROTISING FASCIITIS [None]
